FAERS Safety Report 7347785-2 (Version None)
Quarter: 2011Q1

REPORT INFORMATION
  Report Type: 
  Country: None (occurrence: None)
  Receive Date: 20110302
  Receipt Date: 20110218
  Transmission Date: 20110831
  Serious: Yes (Hospitalization, Other)
  Sender: FDA-Public Use
  Company Number: 1000019040

PATIENT
  Age: 47 Year
  Sex: Male
  Weight: 50 kg

DRUGS (4)
  1. SEROQUEL [Suspect]
     Dosage: (4500 MG,ONCE),ORAL
     Route: 048
     Dates: start: 20101230, end: 20101230
  2. TRUXAL (CHLORPROTHIXENE) (TABLETS) [Suspect]
     Dosage: (1200 MG,ONCE),ORAL
     Route: 048
     Dates: start: 20101230, end: 20101230
  3. ALCOHOL (ETHANOL) [Suspect]
     Dosage: (ONCE),ORAL
     Route: 048
     Dates: start: 20101230, end: 20101230
  4. CITALOPRAM HYDROBROMIDE [Suspect]
     Dosage: (2500 MG,ONCE),ORAL
     Route: 048
     Dates: start: 20101230, end: 20101230

REACTIONS (7)
  - ALCOHOL POISONING [None]
  - MULTIPLE DRUG OVERDOSE INTENTIONAL [None]
  - BIFASCICULAR BLOCK [None]
  - SOMNOLENCE [None]
  - ELECTROCARDIOGRAM QT PROLONGED [None]
  - SUICIDE ATTEMPT [None]
  - VOMITING [None]
